FAERS Safety Report 21214849 (Version 1)
Quarter: 2022Q3

REPORT INFORMATION
  Report Type: Spontaneous
  Country: CA (occurrence: CA)
  Receive Date: 20220816
  Receipt Date: 20220816
  Transmission Date: 20221027
  Serious: Yes (Other)
  Sender: FDA-Public Use
  Company Number: CA-JNJFOC-20220826794

PATIENT
  Age: 45 Year
  Sex: Male

DRUGS (16)
  1. REMICADE [Suspect]
     Active Substance: INFLIXIMAB
     Indication: Retinal vasculitis
     Route: 041
  2. REMICADE [Suspect]
     Active Substance: INFLIXIMAB
     Indication: Behcet^s syndrome
     Route: 041
  3. ASPIRIN [Concomitant]
     Active Substance: ASPIRIN
  4. AMILORIDE [Concomitant]
     Active Substance: AMILORIDE
  5. AZATHIOPRINE [Concomitant]
     Active Substance: AZATHIOPRINE
  6. BISOPROLOL [Concomitant]
     Active Substance: BISOPROLOL
  7. CLOPIDOGREL BISULFATE [Concomitant]
     Active Substance: CLOPIDOGREL BISULFATE
  8. CALCIUM [Concomitant]
     Active Substance: CALCIUM
  9. PERINDOPRIL [Concomitant]
     Active Substance: PERINDOPRIL
  10. PANTOPRAZOLE [Concomitant]
     Active Substance: PANTOPRAZOLE
  11. RISEDRONATE SODIUM [Concomitant]
     Active Substance: RISEDRONATE SODIUM
  12. PREDNISONE [Concomitant]
     Active Substance: PREDNISONE
  13. ROSUVASTATIN [Concomitant]
     Active Substance: ROSUVASTATIN
  14. SULFAMETHOXAZOLE\TRIMETHOPRIM [Concomitant]
     Active Substance: SULFAMETHOXAZOLE\TRIMETHOPRIM
  15. SULFADIAZINE\TRIMETHOPRIM [Concomitant]
     Active Substance: SULFADIAZINE\TRIMETHOPRIM
  16. PERINDOPRIL ARGININE [Concomitant]
     Active Substance: PERINDOPRIL ARGININE

REACTIONS (3)
  - C-reactive protein increased [Unknown]
  - Infection [Unknown]
  - Off label use [Unknown]
